FAERS Safety Report 8584222 (Version 4)
Quarter: 2013Q3

REPORT INFORMATION
  Report Type: Spontaneous
  Country: US (occurrence: US)
  Receive Date: 20120529
  Receipt Date: 20130719
  Transmission Date: 20140515
  Serious: Yes (Other)
  Sender: FDA-Public Use
  Company Number: US-ASTRAZENECA-2011SE53707

PATIENT
  Age: 62 Year
  Sex: Female
  Weight: 81.6 kg

DRUGS (24)
  1. ATACAND HCT [Suspect]
     Indication: BLOOD PRESSURE ABNORMAL
     Dosage: DAILY
     Route: 048
  2. NEXIUM [Suspect]
     Indication: GASTROOESOPHAGEAL REFLUX DISEASE
     Route: 048
  3. NEXIUM [Suspect]
     Indication: GASTRIC DISORDER
     Route: 048
  4. NEXIUM [Suspect]
     Indication: GASTROOESOPHAGEAL REFLUX DISEASE
     Route: 048
  5. NEXIUM [Suspect]
     Indication: GASTRIC DISORDER
     Route: 048
  6. SEROQUEL [Suspect]
     Indication: ANXIETY
     Route: 048
     Dates: start: 201010
  7. SEROQUEL [Suspect]
     Indication: DEPRESSION
     Route: 048
     Dates: start: 201010
  8. SEROQUEL [Suspect]
     Indication: MAJOR DEPRESSION
     Route: 048
     Dates: start: 201010
  9. SEROQUEL [Suspect]
     Indication: ANXIETY
     Route: 048
     Dates: start: 20120508
  10. SEROQUEL [Suspect]
     Indication: DEPRESSION
     Route: 048
     Dates: start: 20120508
  11. SEROQUEL [Suspect]
     Indication: MAJOR DEPRESSION
     Route: 048
     Dates: start: 20120508
  12. SEROQUEL [Suspect]
     Indication: ANXIETY
     Route: 048
  13. SEROQUEL [Suspect]
     Indication: DEPRESSION
     Route: 048
  14. SEROQUEL [Suspect]
     Indication: MAJOR DEPRESSION
     Route: 048
  15. ATACAND [Suspect]
     Indication: BLOOD PRESSURE ABNORMAL
     Dosage: DAILY
     Route: 048
     Dates: end: 20130517
  16. METOPROLOL SUCCINATE [Suspect]
     Indication: HYPERTENSION
     Route: 048
     Dates: start: 20130618
  17. STEROID [Suspect]
     Route: 065
  18. CLODIPINE [Concomitant]
     Indication: ANXIETY
     Route: 048
  19. ESTRACE [Concomitant]
     Indication: HORMONE REPLACEMENT THERAPY
     Route: 048
  20. SALINE SOLUTION FOR NOSE [Concomitant]
  21. CYMBALTA [Concomitant]
  22. KLONOPIN [Concomitant]
  23. MOUTHWASH OTC [Concomitant]
  24. MOUTHSPRAY [Concomitant]

REACTIONS (41)
  - Suicidal ideation [Unknown]
  - Throat tightness [Recovered/Resolved]
  - Nasopharyngitis [Unknown]
  - Nasal dryness [Unknown]
  - Nasal congestion [Unknown]
  - Intervertebral disc protrusion [Unknown]
  - Feeling of despair [Unknown]
  - Chapped lips [Unknown]
  - Tongue haemorrhage [Unknown]
  - Lip haemorrhage [Unknown]
  - Tongue discolouration [Unknown]
  - Tongue disorder [Unknown]
  - Plicated tongue [Unknown]
  - Odynophagia [Unknown]
  - Irritable bowel syndrome [Unknown]
  - Depression [Unknown]
  - Stomatitis [Unknown]
  - Abdominal pain upper [Unknown]
  - Malaise [Unknown]
  - Dry mouth [Unknown]
  - Memory impairment [Not Recovered/Not Resolved]
  - Fibromyalgia [Not Recovered/Not Resolved]
  - Mastocytosis [Not Recovered/Not Resolved]
  - Coeliac disease [Recovering/Resolving]
  - Abdominal pain upper [Recovered/Resolved]
  - Diarrhoea [Recovered/Resolved]
  - Ear discomfort [Recovered/Resolved]
  - Flushing [Recovered/Resolved]
  - Generalised erythema [Recovered/Resolved]
  - Jaw disorder [Recovered/Resolved]
  - Blister [Recovered/Resolved]
  - Paraesthesia [Recovered/Resolved]
  - Heart rate increased [Recovered/Resolved]
  - Abnormal loss of weight [Recovered/Resolved]
  - Adverse event [Not Recovered/Not Resolved]
  - Pain in extremity [Not Recovered/Not Resolved]
  - Palpitations [Unknown]
  - Dyspnoea [Unknown]
  - Chest discomfort [Unknown]
  - Decreased appetite [Unknown]
  - Off label use [Unknown]
